FAERS Safety Report 7840814-9 (Version None)
Quarter: 2011Q4

REPORT INFORMATION
  Report Type: 
  Country: None (occurrence: None)
  Receive Date: 20111025
  Receipt Date: 20111011
  Transmission Date: 20120403
  Serious: Yes (Hospitalization)
  Sender: FDA-Public Use
  Company Number: CN-PAR PHARMACEUTICAL, INC-2011SCPR003262

PATIENT

DRUGS (9)
  1. LEVETIRACETAM [Interacting]
     Dosage: 8 P.M. DOSE INCREASED TO 2 G
     Route: 065
     Dates: start: 20110828
  2. LEVETIRACETAM [Interacting]
     Dosage: 1.5 G Q12H
     Route: 065
     Dates: start: 20090910
  3. PHENOBARBITAL TAB [Interacting]
     Dosage: 8 AM DOSE REDUCED TO 0.1 G
     Route: 065
     Dates: start: 20090811
  4. CLONAZEPAM [Concomitant]
     Indication: PARTIAL SEIZURES
     Dosage: 6 MG, Q6H
     Route: 051
  5. LEVETIRACETAM [Suspect]
     Indication: PARTIAL SEIZURES
     Dosage: 0.5G Q12H WITH 0.5G INCREASE EVERY 3 DAYS
     Route: 050
     Dates: start: 20090717
  6. PHENOBARBITAL TAB [Interacting]
     Dosage: 8 AM DOSE INCREASED TO 0.2 G
     Route: 065
     Dates: start: 20090907
  7. LEVETIRACETAM [Interacting]
     Dosage: 1.5 G Q12H
     Route: 065
     Dates: start: 20090730
  8. LEVETIRACETAM [Interacting]
     Dosage: 8 A.M. DOSE INCREASED TO 2 G
     Route: 065
     Dates: start: 20090811
  9. PHENOBARBITAL TAB [Interacting]
     Indication: PARTIAL SEIZURES
     Dosage: 0.2G, Q4H
     Route: 051

REACTIONS (2)
  - DRUG INTERACTION [None]
  - EPILEPSY [None]
